FAERS Safety Report 23191454 (Version 1)
Quarter: 2023Q4

REPORT INFORMATION
  Report Type: Report from Study
  Country: US (occurrence: US)
  Receive Date: 20231116
  Receipt Date: 20231116
  Transmission Date: 20240110
  Serious: Yes (Hospitalization, Other)
  Sender: FDA-Public Use
  Company Number: US-GILEAD-2023-0651346

PATIENT
  Age: 60 Year
  Sex: Male

DRUGS (15)
  1. AZTREONAM LYSINE [Suspect]
     Active Substance: AZTREONAM LYSINE
     Indication: Cystic fibrosis
     Dosage: 75 MG, TID (INHALE 75MG VIA NEBULIZER INTO THE LUNGS THREE TIMES DAILY FOR 28 DAYS ON 28 DAYS OFF)
     Route: 055
     Dates: start: 20220330
  2. ACIDOPHILUS [Concomitant]
     Active Substance: LACTOBACILLUS ACIDOPHILUS
  3. FLUTICASONE PROPIONATE\SALMETEROL XINAFOATE [Concomitant]
     Active Substance: FLUTICASONE PROPIONATE\SALMETEROL XINAFOATE
  4. ASPIRIN [Concomitant]
     Active Substance: ASPIRIN
  5. AZITHROMYCIN [Concomitant]
     Active Substance: AZITHROMYCIN
  6. BETHKIS [Concomitant]
     Active Substance: TOBRAMYCIN
  7. CLARITHROMYCIN [Concomitant]
     Active Substance: CLARITHROMYCIN
  8. CLOTRIMAZOLE [Concomitant]
     Active Substance: CLOTRIMAZOLE
  9. COMBIVENT [Concomitant]
     Active Substance: ALBUTEROL SULFATE\IPRATROPIUM BROMIDE
  10. KALYDECO [Concomitant]
     Active Substance: IVACAFTOR
  11. LANTUS [Concomitant]
     Active Substance: INSULIN GLARGINE
  12. PULMOZYME [Concomitant]
     Active Substance: DORNASE ALFA
  13. SODIUM CHLORIDE [Concomitant]
     Active Substance: SODIUM CHLORIDE
  14. VITAMIN D3 [Concomitant]
     Active Substance: CHOLECALCIFEROL
  15. ZENPEP [Concomitant]
     Active Substance: PANCRELIPASE AMYLASE\PANCRELIPASE LIPASE\PANCRELIPASE PROTEASE

REACTIONS (2)
  - Dialysis [Unknown]
  - Malaise [Unknown]
